FAERS Safety Report 8971342 (Version 1)
Quarter: 2012Q4

REPORT INFORMATION
  Report Type: 
  Country: US (occurrence: US)
  Receive Date: 20121218
  Receipt Date: 20121218
  Transmission Date: 20130627
  Serious: Yes (Other)
  Sender: FDA-Public Use
  Company Number: US-JNJFOC-20121205273

PATIENT
  Sex: Male
  Weight: 67.13 kg

DRUGS (9)
  1. REMICADE [Suspect]
     Indication: COLITIS ULCERATIVE
     Route: 042
  2. ATENOLOL [Concomitant]
     Route: 065
  3. DOXAZOSIN [Concomitant]
     Route: 065
  4. ASPIRIN [Concomitant]
     Route: 065
  5. CALCIUM W/VITAMINS NOS [Concomitant]
     Route: 065
  6. ASACOL HD [Concomitant]
     Route: 065
  7. HYDROCODONE/APAP [Concomitant]
     Route: 065
  8. CALCIUM W/ VITAMIN D [Concomitant]
     Route: 065
  9. LUPRON [Concomitant]
     Route: 065
     Dates: start: 20120926

REACTIONS (1)
  - Prostate cancer metastatic [Not Recovered/Not Resolved]
